FAERS Safety Report 24923776 (Version 2)
Quarter: 2025Q1

REPORT INFORMATION
  Report Type: Spontaneous
  Country: US (occurrence: US)
  Receive Date: 20250204
  Receipt Date: 20250304
  Transmission Date: 20250409
  Serious: Yes (Other)
  Sender: CSL BEHRING
  Company Number: US-BEH-2025193791

PATIENT
  Age: 35 Year
  Sex: Male

DRUGS (8)
  1. IDELVION [Suspect]
     Active Substance: COAGULATION FACTOR IX RECOMBINANT HUMAN
     Indication: Factor IX deficiency
     Dosage: 3000 UNITS (STRENGTH: 2000) EVERY 7 DAYS AND AS NEEDED FOR BLEEDS
     Route: 042
     Dates: start: 2017
  2. IDELVION [Suspect]
     Active Substance: COAGULATION FACTOR IX RECOMBINANT HUMAN
     Indication: Factor IX deficiency
     Dosage: 3000 UNITS (STRENGTH: 2000) EVERY 7 DAYS AND AS NEEDED FOR BLEEDS
     Route: 042
     Dates: start: 2017
  3. IDELVION [Suspect]
     Active Substance: COAGULATION FACTOR IX RECOMBINANT HUMAN
     Indication: Prophylaxis
     Dosage: 3000 UNITS (STRENGTH: 500) EVERY 7 DAYS AND AS NEEDED FOR BLEEDS
     Route: 042
     Dates: start: 2017
  4. IDELVION [Suspect]
     Active Substance: COAGULATION FACTOR IX RECOMBINANT HUMAN
     Indication: Prophylaxis
     Dosage: 3000 UNITS (STRENGTH: 500) EVERY 7 DAYS AND AS NEEDED FOR BLEEDS
     Route: 042
     Dates: start: 2017
  5. IDELVION [Suspect]
     Active Substance: COAGULATION FACTOR IX RECOMBINANT HUMAN
     Dosage: 3000 UNITS (STRENGTH: 2000) EVERY 7 DAYS AND PRN
     Route: 042
     Dates: start: 202501
  6. IDELVION [Suspect]
     Active Substance: COAGULATION FACTOR IX RECOMBINANT HUMAN
     Dosage: 3000 UNITS (STRENGTH: 2000) EVERY 7 DAYS AND PRN
     Route: 042
     Dates: start: 202501
  7. IDELVION [Suspect]
     Active Substance: COAGULATION FACTOR IX RECOMBINANT HUMAN
     Dosage: 3000 UNITS (STRENGTH: 500) EVERY 7 DAYS AND PRN
     Route: 042
     Dates: start: 202501
  8. IDELVION [Suspect]
     Active Substance: COAGULATION FACTOR IX RECOMBINANT HUMAN
     Dosage: 3000 UNITS (STRENGTH: 500) EVERY 7 DAYS AND PRN
     Route: 042
     Dates: start: 202501

REACTIONS (7)
  - Haemarthrosis [Recovered/Resolved]
  - Haemarthrosis [Recovered/Resolved]
  - Haemarthrosis [Recovered/Resolved]
  - Haemarthrosis [Recovered/Resolved]
  - Haemarthrosis [Recovered/Resolved]
  - Haemarthrosis [Recovered/Resolved]
  - Gait inability [Unknown]

NARRATIVE: CASE EVENT DATE: 20241024
